FAERS Safety Report 12561305 (Version 2)
Quarter: 2016Q3

REPORT INFORMATION
  Report Type: Spontaneous
  Country: JP (occurrence: JP)
  Receive Date: 20160715
  Receipt Date: 20160804
  Transmission Date: 20161109
  Serious: Yes (Hospitalization)
  Sender: FDA-Public Use
  Company Number: JP-ASTRAZENECA-2016SE75693

PATIENT
  Age: 26815 Day
  Sex: Female
  Weight: 58 kg

DRUGS (2)
  1. FASLODEX [Suspect]
     Active Substance: FULVESTRANT
     Indication: BREAST CANCER RECURRENT
     Route: 030
     Dates: end: 20160708
  2. RANMARK [Concomitant]
     Active Substance: DENOSUMAB
     Indication: METASTASES TO BONE
     Route: 058
     Dates: start: 20150220

REACTIONS (3)
  - Gait disturbance [Recovering/Resolving]
  - Sciatic nerve injury [Recovering/Resolving]
  - Injection site haematoma [Recovering/Resolving]

NARRATIVE: CASE EVENT DATE: 20160708
